FAERS Safety Report 9844921 (Version 1)
Quarter: 2014Q1

REPORT INFORMATION
  Report Type: Spontaneous
  Country: US (occurrence: US)
  Receive Date: 20140127
  Receipt Date: 20140127
  Transmission Date: 20141002
  Serious: No
  Sender: FDA-Public Use
  Company Number: US-MYLANLABS-2013S1028907

PATIENT
  Age: 78 Year
  Sex: Female
  Weight: 62.6 kg

DRUGS (5)
  1. ACYCLOVIR OINTMENT USP [Suspect]
     Indication: ORAL HERPES
     Route: 061
     Dates: start: 20131217, end: 20131217
  2. NEXIUM [Concomitant]
  3. ATENOLOL [Concomitant]
     Indication: HYPERTENSION
  4. LISINOPRIL [Concomitant]
     Indication: HYPERTENSION
  5. LIPITOR [Concomitant]
     Indication: HYPERLIPIDAEMIA

REACTIONS (1)
  - Application site pain [Recovered/Resolved]
